FAERS Safety Report 6793105-1 (Version None)
Quarter: 2010Q2

REPORT INFORMATION
  Report Type: 
  Country: None (occurrence: None)
  Receive Date: 20100624
  Receipt Date: 20090605
  Transmission Date: 20101027
  Serious: No
  Sender: FDA-Public Use
  Company Number: US-MYLANLABS-2009S1008064

PATIENT
  Age: 56 Year
  Sex: Female
  Weight: 90.45 kg

DRUGS (7)
  1. CLOZAPINE [Suspect]
     Dates: start: 20090317, end: 20090512
  2. LIPITOR [Concomitant]
  3. SYNTHROID [Concomitant]
  4. KLONOPIN [Concomitant]
  5. DEPAKOTE [Concomitant]
  6. GRISEOFULVIN [Concomitant]
  7. HALIDOL [Concomitant]

REACTIONS (1)
  - GRANULOCYTOPENIA [None]
